FAERS Safety Report 4827801-X (Version None)
Quarter: 2005Q4

REPORT INFORMATION
  Report Type: 
  Country: None (occurrence: None)
  Receive Date: 20051110
  Receipt Date: 20051028
  Transmission Date: 20060501
  Serious: Yes (Other)
  Sender: FDA-Public Use
  Company Number: SUS1-2005-00711

PATIENT
  Age: 10 Year
  Sex: Male

DRUGS (1)
  1. ADDERALL 10 [Suspect]
     Indication: ATTENTION DEFICIT/HYPERACTIVITY DISORDER
     Dosage: 20 MG, 1X/DAY;QD IN AM
     Dates: end: 20051001

REACTIONS (6)
  - BENIGN NEOPLASM [None]
  - CONJUNCTIVAL HYPERAEMIA [None]
  - GLAUCOMA [None]
  - HYPERMETROPIA [None]
  - MELANOCYTIC NAEVUS [None]
  - MULTIPLE ALLERGIES [None]
